FAERS Safety Report 6272107-8 (Version None)
Quarter: 2009Q3

REPORT INFORMATION
  Report Type: 
  Country: None (occurrence: None)
  Receive Date: 20090717
  Receipt Date: 20090710
  Transmission Date: 20100115
  Serious: Yes (Hospitalization)
  Sender: FDA-Public Use
  Company Number: B0583377A

PATIENT
  Sex: Female

DRUGS (2)
  1. ZELITREX [Suspect]
     Dosage: 500MG FOUR TIMES PER DAY
     Route: 048
     Dates: start: 20081204, end: 20081207
  2. LYRICA [Suspect]
     Dosage: 50MG TWICE PER DAY
     Route: 048
     Dates: start: 20081204, end: 20081207

REACTIONS (4)
  - EPILEPSY [None]
  - OVERDOSE [None]
  - RENAL FAILURE ACUTE [None]
  - TOXIC ENCEPHALOPATHY [None]
